FAERS Safety Report 9523006 (Version 1)
Quarter: 2013Q3

REPORT INFORMATION
  Report Type: Spontaneous
  Country: CH (occurrence: CH)
  Receive Date: 20130913
  Receipt Date: 20130913
  Transmission Date: 20140515
  Serious: Yes (Death)
  Sender: FDA-Public Use
  Company Number: CH-BAYER-2013-110155

PATIENT
  Age: 77 Year
  Sex: Male

DRUGS (7)
  1. NEXAVAR [Suspect]
     Indication: HEPATOCELLULAR CARCINOMA
     Dosage: 200 MG, BID
     Route: 048
     Dates: start: 20130501, end: 20130606
  2. DUPHALAC [LACTULOSE] [Concomitant]
     Dosage: 20 ML, TID
  3. ALDACTONE [SPIRONOLACTONE] [Concomitant]
     Dosage: 50 MG, QD
  4. TORASEM [Concomitant]
     Dosage: 10 MG, QD
  5. PANTOZOL [Concomitant]
     Dosage: UNK
  6. FINASTERIDE [Concomitant]
     Dosage: 5 MG, QD
     Route: 048
  7. INDERAL [Concomitant]
     Dosage: 10 MG, TID

REACTIONS (2)
  - Cerebrovascular accident [Fatal]
  - Thrombocytopenia [Fatal]
